FAERS Safety Report 24198085 (Version 2)
Quarter: 2024Q3

REPORT INFORMATION
  Report Type: Spontaneous
  Country: US (occurrence: US)
  Receive Date: 20240812
  Receipt Date: 20240913
  Transmission Date: 20241017
  Serious: Yes (Death)
  Sender: NOVARTIS
  Company Number: US-002147023-NVSC2024US162673

PATIENT
  Age: 75 Year
  Sex: Male

DRUGS (1)
  1. PLUVICTO [Suspect]
     Active Substance: LUTETIUM LU-177 VIPIVOTIDE TETRAXETAN
     Indication: Hormone-refractory prostate cancer
     Dosage: UNK (200 MLC,6 WEEKS)
     Route: 065
     Dates: start: 20240411

REACTIONS (1)
  - Death [Fatal]

NARRATIVE: CASE EVENT DATE: 20240610
